FAERS Safety Report 20623497 (Version 2)
Quarter: 2022Q2

REPORT INFORMATION
  Report Type: Report from Study
  Country: US (occurrence: US)
  Receive Date: 20220322
  Receipt Date: 20220518
  Transmission Date: 20220721
  Serious: Yes (Hospitalization, Other)
  Sender: FDA-Public Use
  Company Number: US-TAKEDA-2022TUS018914

PATIENT
  Sex: Female
  Weight: 59.8 kg

DRUGS (3)
  1. PONATINIB [Suspect]
     Active Substance: PONATINIB
     Indication: Acute lymphocytic leukaemia
     Dosage: 15 MILLIGRAM, QD
     Route: 065
     Dates: start: 20210930
  2. PONATINIB [Suspect]
     Active Substance: PONATINIB
     Indication: Neuropathy peripheral
     Dosage: 30 MILLIGRAM, QD
     Route: 065
  3. DEXAMETHASONE [Concomitant]
     Active Substance: DEXAMETHASONE
     Dosage: UNK
     Route: 065

REACTIONS (8)
  - Illness [Recovering/Resolving]
  - Adverse event [Unknown]
  - White blood cell count increased [Unknown]
  - Acute lymphocytic leukaemia [Unknown]
  - Hypoacusis [Unknown]
  - Feeling cold [Recovering/Resolving]
  - Pyrexia [Recovering/Resolving]
  - Off label use [Unknown]
